FAERS Safety Report 11870779 (Version 1)
Quarter: 2015Q4

REPORT INFORMATION
  Report Type: Spontaneous
  Country: US (occurrence: US)
  Receive Date: 20151228
  Receipt Date: 20151228
  Transmission Date: 20160305
  Serious: Yes (Hospitalization)
  Sender: FDA-Public Use
  Company Number: US-SA-2015SA221053

PATIENT
  Age: 43 Year
  Sex: Male
  Weight: 71.21 kg

DRUGS (19)
  1. FABRAZYME [Suspect]
     Active Substance: AGALSIDASE BETA
     Indication: LIPIDOSIS
     Route: 042
     Dates: start: 20100218
  2. EPIPEN [Concomitant]
     Active Substance: EPINEPHRINE
     Indication: ANAPHYLACTIC REACTION
     Dosage: AS DIRECTED
     Dates: start: 20151027
  3. SENSIPAR [Concomitant]
     Active Substance: CINACALCET HYDROCHLORIDE
     Dosage: AS DIRECTED
     Dates: start: 20150227
  4. PAXIL [Concomitant]
     Active Substance: PAROXETINE HYDROCHLORIDE
     Dosage: AS DIRECTED
     Dates: start: 20150227
  5. SODIUM CHLORIDE. [Concomitant]
     Active Substance: SODIUM CHLORIDE
     Indication: FLUSHING
     Dosage: AS DIRECTED
     Dates: start: 20151027
  6. PREDNISONE. [Concomitant]
     Active Substance: PREDNISONE
     Dosage: AS DIRECTED
     Dates: start: 20150227
  7. WARFARIN SODIUM. [Concomitant]
     Active Substance: WARFARIN SODIUM
     Dosage: AS DIRECTED
     Dates: start: 20150227
  8. NORMAL SALINE [Concomitant]
     Active Substance: SODIUM CHLORIDE
     Indication: FLUSHING
     Dosage: AS DIRECTED
     Dates: start: 20151027
  9. NEURONTIN [Concomitant]
     Active Substance: GABAPENTIN
     Dosage: AS DIRECTED
     Dates: start: 20150227
  10. ZOLOFT [Concomitant]
     Active Substance: SERTRALINE HYDROCHLORIDE
     Dosage: AS DIRECTED
     Dates: start: 20100330
  11. SOLU-CORTEF [Concomitant]
     Active Substance: HYDROCORTISONE SODIUM SUCCINATE
     Indication: ANAPHYLACTIC REACTION
     Dosage: AS DIRECTED
     Dates: start: 20151027
  12. COLACE [Concomitant]
     Active Substance: DOCUSATE SODIUM
     Dosage: AS DIRECTED
     Dates: start: 20100330
  13. DIPHENHYDRAMINE HYDROCHLORIDE. [Concomitant]
     Active Substance: DIPHENHYDRAMINE HYDROCHLORIDE
     Indication: ANAPHYLACTIC REACTION
     Dosage: AS DIRECTED
     Dates: start: 20151027
  14. CALCITRIOL. [Concomitant]
     Active Substance: CALCITRIOL
     Dosage: AS DIRECTED DOSE:1 MICROGRAM(S)/MILLILITRE
     Dates: start: 20100330
  15. DIALYVITE [Concomitant]
     Active Substance: ASCORBIC ACID\BIOTIN\CALCIUM PANTOTHENATE\COBALAMIN\FOLIC ACID\NIACINAMIDE\PYRIDOXINE HYDROCHLORIDE\RIBOFLAVIN\THIAMINE MONONITRATE
     Dosage: AS DIRECTED
     Dates: start: 20100330
  16. FABRAZYME [Suspect]
     Active Substance: AGALSIDASE BETA
     Indication: FABRY^S DISEASE
     Route: 042
     Dates: start: 20100218
  17. ASPIRIN. [Concomitant]
     Active Substance: ASPIRIN
     Dosage: AS DIRECTED
     Dates: start: 20150227
  18. RENAGEL [Concomitant]
     Active Substance: SEVELAMER HYDROCHLORIDE
     Dosage: AS DIRECTED
     Dates: start: 20100330
  19. EPOGEN [Concomitant]
     Active Substance: ERYTHROPOIETIN
     Dosage: EPOGEN 4,000 UNITS/ML VIAL, AS DIRECTED
     Dates: start: 20100330

REACTIONS (1)
  - Rotator cuff repair [Recovered/Resolved]
